FAERS Safety Report 10685238 (Version 1)
Quarter: 2014Q4

REPORT INFORMATION
  Report Type: Spontaneous
  Country: BR (occurrence: BR)
  Receive Date: 20141231
  Receipt Date: 20141231
  Transmission Date: 20150529
  Serious: Yes (Other)
  Sender: FDA-Public Use
  Company Number: BR-ABBVIE-14P-020-1327634-00

PATIENT
  Sex: Female
  Weight: 51 kg

DRUGS (7)
  1. DEPAKENE [Suspect]
     Active Substance: VALPROIC ACID
     Dosage: 2 TABLETS AND HALF DAILY
     Route: 065
  2. URBANIL [Concomitant]
     Active Substance: CLOBAZAM
     Indication: ANXIETY
     Route: 048
  3. DEPAKOTE [Suspect]
     Active Substance: DIVALPROEX SODIUM
     Indication: EPILEPSY
     Route: 048
  4. GARDENAL [Concomitant]
     Active Substance: PHENOBARBITAL
     Indication: EPILEPSY
     Dosage: 1 TABLET IN THE MORNING; 1 TABLET AND A HALF AT NIGHT
     Route: 048
  5. TOPIRAMATE. [Concomitant]
     Active Substance: TOPIRAMATE
     Indication: EPILEPSY
     Route: 048
  6. DEPAKOTE [Suspect]
     Active Substance: DIVALPROEX SODIUM
     Dosage: 2 TABLETS AND HALF DAILY
     Route: 048
  7. DEPAKENE [Suspect]
     Active Substance: VALPROIC ACID
     Indication: EPILEPSY
     Route: 065

REACTIONS (7)
  - Epilepsy [Recovered/Resolved]
  - Liver disorder [Recovered/Resolved]
  - Seizure [Not Recovered/Not Resolved]
  - Myoclonic epilepsy [Recovered/Resolved]
  - Alopecia [Recovered/Resolved]
  - Skin papilloma [Recovering/Resolving]
  - Cardiac arrest [Recovered/Resolved]
